FAERS Safety Report 7813540-X (Version None)
Quarter: 2011Q4

REPORT INFORMATION
  Report Type: 
  Country: None (occurrence: None)
  Receive Date: 20111014
  Receipt Date: 20111006
  Transmission Date: 20120403
  Serious: No
  Sender: FDA-Public Use
  Company Number: US-BIOGENIDEC-2011BI038451

PATIENT
  Age: 27 Year
  Sex: Female

DRUGS (2)
  1. TYSABRI [Suspect]
     Indication: MULTIPLE SCLEROSIS
     Route: 042
     Dates: start: 20110916
  2. TYSABRI [Suspect]
     Route: 042
     Dates: start: 20080811, end: 20100819

REACTIONS (3)
  - MENTAL IMPAIRMENT [None]
  - FATIGUE [None]
  - JOINT STIFFNESS [None]
